FAERS Safety Report 4263362-4 (Version None)
Quarter: 2004Q1

REPORT INFORMATION
  Report Type: 
  Country: None (occurrence: None)
  Receive Date: 20040105
  Receipt Date: 20031015
  Transmission Date: 20041129
  Serious: Yes (Disabling)
  Sender: FDA-Public Use
  Company Number: WAES 0310CAN00060

PATIENT
  Age: 47 Year
  Sex: Female
  Weight: 45 kg

DRUGS (5)
  1. BUDESONIDE AND FORMOTEROL FUMARATE [Concomitant]
     Route: 055
     Dates: start: 19990101
  2. SINGULAIR [Suspect]
     Route: 048
     Dates: start: 19990101
  3. OMEPRAZOLE [Concomitant]
     Indication: GASTROOESOPHAGEAL REFLUX DISEASE
     Dates: start: 19980101
  4. OMEPRAZOLE [Concomitant]
     Indication: COUGH
     Dates: start: 19980101
  5. ZOPICLONE [Concomitant]
     Indication: INSOMNIA
     Dates: start: 19970101

REACTIONS (3)
  - DIZZINESS [None]
  - FEELING HOT [None]
  - HYPERHIDROSIS [None]
